FAERS Safety Report 10638559 (Version 1)
Quarter: 2014Q4

REPORT INFORMATION
  Report Type: Spontaneous
  Country: JP (occurrence: JP)
  Receive Date: 20141208
  Receipt Date: 20141208
  Transmission Date: 20150529
  Serious: Yes (Other)
  Sender: FDA-Public Use
  Company Number: CH-JNJFOC-20141119179

PATIENT

DRUGS (2)
  1. ACETAMINOPHEN. [Suspect]
     Active Substance: ACETAMINOPHEN
     Route: 065
  2. ACETAMINOPHEN. [Suspect]
     Active Substance: ACETAMINOPHEN
     Indication: PRODUCT USED FOR UNKNOWN INDICATION
     Route: 065

REACTIONS (6)
  - Stevens-Johnson syndrome [Unknown]
  - Conjunctival disorder [Unknown]
  - Corneal epithelium defect [Unknown]
  - Toxic epidermal necrolysis [Unknown]
  - Conjunctival hyperaemia [Unknown]
  - Conjunctival ulcer [Unknown]
